FAERS Safety Report 20469610 (Version 3)
Quarter: 2022Q4

REPORT INFORMATION
  Report Type: Report from Study
  Country: US (occurrence: US)
  Receive Date: 20220214
  Receipt Date: 20221025
  Transmission Date: 20230112
  Serious: No
  Sender: FDA-Public Use
  Company Number: US-PHARMACOVIGILANCE-US-KAD-21-00310

PATIENT
  Age: 57 Year
  Sex: Female

DRUGS (11)
  1. BELUMOSUDIL [Suspect]
     Active Substance: BELUMOSUDIL
     Indication: Graft versus host disease
     Dosage: ONE TABLET BY MOUTH BID
     Route: 048
     Dates: start: 20211005
  2. BELUMOSUDIL [Suspect]
     Active Substance: BELUMOSUDIL
     Dosage: 200 MILLIGRAM, QD
     Route: 065
     Dates: start: 20220517
  3. BELUMOSUDIL [Suspect]
     Active Substance: BELUMOSUDIL
     Dosage: 200 MILLIGRAM, QD
     Route: 065
     Dates: start: 20220517
  4. PREDNISONE [Concomitant]
     Active Substance: PREDNISONE
     Indication: Product used for unknown indication
  5. NOXAFIL [Concomitant]
     Active Substance: POSACONAZOLE
     Indication: Product used for unknown indication
  6. JAKAFI [Concomitant]
     Active Substance: RUXOLITINIB
     Indication: Product used for unknown indication
  7. VALTREX [Concomitant]
     Active Substance: VALACYCLOVIR HYDROCHLORIDE
     Indication: Product used for unknown indication
  8. ESCITALOPRAM [Concomitant]
     Active Substance: ESCITALOPRAM OXALATE
     Indication: Product used for unknown indication
  9. XARELTO [Concomitant]
     Active Substance: RIVAROXABAN
     Indication: Product used for unknown indication
  10. CALCIUM CARBONATE [Concomitant]
     Active Substance: CALCIUM CARBONATE
     Indication: Product used for unknown indication
  11. ENBREL [Concomitant]
     Active Substance: ETANERCEPT
     Indication: Graft versus host disease

REACTIONS (2)
  - Musculoskeletal stiffness [Not Recovered/Not Resolved]
  - Drug ineffective [Not Recovered/Not Resolved]

NARRATIVE: CASE EVENT DATE: 20211005
